FAERS Safety Report 7688227-7 (Version None)
Quarter: 2011Q3

REPORT INFORMATION
  Report Type: 
  Country: None (occurrence: None)
  Receive Date: 20110817
  Receipt Date: 20110624
  Transmission Date: 20111222
  Serious: Yes (Other)
  Sender: FDA-Public Use
  Company Number: US-GLAXOSMITHKLINE-A0933542A

PATIENT
  Age: 75 Year
  Sex: Male
  Weight: 84.5 kg

DRUGS (1)
  1. VOTRIENT [Suspect]
     Indication: RENAL CANCER
     Dosage: 800MG PER DAY
     Route: 065

REACTIONS (2)
  - HEPATIC ENZYME INCREASED [None]
  - ELECTROCARDIOGRAM QT PROLONGED [None]
